FAERS Safety Report 7782181-5 (Version None)
Quarter: 2011Q3

REPORT INFORMATION
  Report Type: 
  Country: None (occurrence: None)
  Receive Date: 20110927
  Receipt Date: 20110919
  Transmission Date: 20111222
  Serious: Yes (Other)
  Sender: FDA-Public Use
  Company Number: MX-SANOFI-AVENTIS-2011SA061699

PATIENT
  Age: 86 Year
  Sex: Female
  Weight: 60 kg

DRUGS (3)
  1. EFFEXOR [Concomitant]
     Indication: DEPRESSION
     Route: 048
     Dates: start: 20110701
  2. LOSARTAN POTASSIUM [Concomitant]
     Dosage: EVERY 48 HOURS
     Route: 048
  3. LANTUS [Suspect]
     Indication: TYPE 2 DIABETES MELLITUS
     Dosage: 14-24 IU EVERY 24 HOURS
     Route: 058
     Dates: start: 20050101, end: 20110801

REACTIONS (6)
  - RENAL FAILURE [None]
  - CONVULSION [None]
  - DECREASED APPETITE [None]
  - DEPRESSION [None]
  - WEIGHT DECREASED [None]
  - HYPOGLYCAEMIA [None]
